FAERS Safety Report 11553621 (Version 1)
Quarter: 2015Q3

REPORT INFORMATION
  Report Type: Spontaneous
  Country: US (occurrence: None)
  Receive Date: 20150924
  Receipt Date: 20150924
  Transmission Date: 20151125
  Serious: Yes (Hospitalization)
  Sender: FDA-Public Use
  Company Number: None

PATIENT
  Age: 81 Year
  Sex: Male
  Weight: 83.4 kg

DRUGS (1)
  1. GEMCITABINE [Suspect]
     Active Substance: GEMCITABINE\GEMCITABINE HYDROCHLORIDE
     Dates: end: 20150818

REACTIONS (6)
  - Atelectasis [None]
  - Thrombosis [None]
  - Erythema [None]
  - Fluid overload [None]
  - Swelling [None]
  - Pleural effusion [None]

NARRATIVE: CASE EVENT DATE: 20150906
